FAERS Safety Report 9532561 (Version 1)
Quarter: 2013Q1

REPORT INFORMATION
  Report Type: Spontaneous
  Country: US (occurrence: None)
  Receive Date: 20130329
  Receipt Date: 20130329
  Transmission Date: 20140127
  Serious: No
  Sender: FDA-Public Use
  Company Number: 1000041885

PATIENT
  Age: 66 Year
  Sex: Female

DRUGS (4)
  1. LINZESS (LINACLOTIDE) (290 MICROGRAM, CAPSULES) [Suspect]
     Indication: IRRITABLE BOWEL SYNDROME
     Dosage: 1 IN 1 D
     Route: 048
  2. CRESTOR (ROSUVASTATIN CALCIUM) (ROSUVASTATIN CALCIUM) [Concomitant]
  3. PREVACID (LANSOPRAZOLE) [Concomitant]
  4. ALPRAZOLAM [Concomitant]

REACTIONS (1)
  - Diarrhoea [None]
